FAERS Safety Report 24460285 (Version 1)
Quarter: 2024Q4

REPORT INFORMATION
  Report Type: Spontaneous
  Country: JP (occurrence: JP)
  Receive Date: 20241018
  Receipt Date: 20241018
  Transmission Date: 20250114
  Serious: No
  Sender: ROCHE
  Company Number: JP-ROCHE-3546143

PATIENT
  Sex: Female
  Weight: 37.0 kg

DRUGS (13)
  1. RITUXAN [Suspect]
     Active Substance: RITUXIMAB
     Indication: Acquired haemophilia
     Route: 041
     Dates: start: 20240110, end: 20240131
  2. HEMLIBRA [Concomitant]
     Active Substance: EMICIZUMAB-KXWH
     Route: 058
     Dates: start: 20231226, end: 20231226
  3. HEMLIBRA [Concomitant]
     Active Substance: EMICIZUMAB-KXWH
     Route: 058
     Dates: start: 20231227, end: 20231227
  4. HEMLIBRA [Concomitant]
     Active Substance: EMICIZUMAB-KXWH
     Route: 058
     Dates: start: 20240102
  5. PREDNISOLONE [Concomitant]
     Active Substance: PREDNISOLONE
     Dates: start: 20231226
  6. SULFAMETHOXAZOLE\TRIMETHOPRIM [Concomitant]
     Active Substance: SULFAMETHOXAZOLE\TRIMETHOPRIM
     Route: 048
     Dates: start: 20240101
  7. ESOMEPRAZOLE [Concomitant]
     Active Substance: ESOMEPRAZOLE
     Route: 048
  8. BISOPROLOL FUMARATE [Concomitant]
     Active Substance: BISOPROLOL FUMARATE
     Route: 048
  9. MIRABEGRON [Concomitant]
     Active Substance: MIRABEGRON
     Route: 048
  10. URAPIDIL [Concomitant]
     Active Substance: URAPIDIL
     Route: 048
  11. CARBIDOPA\LEVODOPA [Concomitant]
     Active Substance: CARBIDOPA\LEVODOPA
     Route: 048
  12. NOVOSEVEN [Concomitant]
     Active Substance: COAGULATION FACTOR VIIA RECOMBINANT HUMAN
     Indication: Muscle haemorrhage
     Route: 042
     Dates: start: 20240103, end: 20240105
  13. HUMAN RED BLOOD CELL [Concomitant]
     Active Substance: HUMAN RED BLOOD CELL
     Dates: start: 20240103

REACTIONS (2)
  - Off label use [Unknown]
  - No adverse event [Unknown]

NARRATIVE: CASE EVENT DATE: 20240110
